FAERS Safety Report 18164601 (Version 8)
Quarter: 2025Q3

REPORT INFORMATION
  Report Type: Spontaneous
  Country: CA (occurrence: CA)
  Receive Date: 20200818
  Receipt Date: 20250806
  Transmission Date: 20251021
  Serious: Yes (Hospitalization, Other)
  Sender: NOVARTIS
  Company Number: None

PATIENT
  Age: 63 Year
  Sex: Male

DRUGS (206)
  1. FUROSEMIDE [Suspect]
     Active Substance: FUROSEMIDE
     Indication: Product used for unknown indication
     Dosage: 20 MG, QD (90 DAYS)
     Route: 065
  2. FUROSEMIDE [Suspect]
     Active Substance: FUROSEMIDE
     Dosage: 20 MG, QD (90 DAYS)
     Route: 065
  3. FUROSEMIDE [Suspect]
     Active Substance: FUROSEMIDE
     Dosage: 20 MG, QD (100 DAYS)
     Route: 065
  4. FUROSEMIDE [Suspect]
     Active Substance: FUROSEMIDE
     Dosage: 2.5 MG, QD
     Route: 065
  5. MONTELUKAST SODIUM [Suspect]
     Active Substance: MONTELUKAST SODIUM
     Indication: Product used for unknown indication
     Dosage: 10 MG, QD (60 DAYS)
     Route: 065
  6. MONTELUKAST SODIUM [Suspect]
     Active Substance: MONTELUKAST SODIUM
     Dosage: 10 MG, QD (30 DAYS)
     Route: 065
  7. MONTELUKAST SODIUM [Suspect]
     Active Substance: MONTELUKAST SODIUM
     Dosage: 10 MG, QD (14 DAYS)
     Route: 048
  8. MONTELUKAST SODIUM [Suspect]
     Active Substance: MONTELUKAST SODIUM
     Dosage: 10 MG, QD (90 DAYS)
     Route: 048
  9. MONTELUKAST SODIUM [Suspect]
     Active Substance: MONTELUKAST SODIUM
     Dosage: 10 MG, QD (90 MINUTES)
     Route: 065
  10. MONTELUKAST SODIUM [Suspect]
     Active Substance: MONTELUKAST SODIUM
     Dosage: 10 MG, QD (30 DAYS)
     Route: 065
  11. MONTELUKAST SODIUM [Suspect]
     Active Substance: MONTELUKAST SODIUM
     Dosage: 10 MG, QD (90 DAYS)
     Route: 048
  12. MONTELUKAST SODIUM [Suspect]
     Active Substance: MONTELUKAST SODIUM
     Dosage: 10 MG, QD (90 DAYS)
     Route: 065
  13. MONTELUKAST SODIUM [Suspect]
     Active Substance: MONTELUKAST SODIUM
     Dosage: 10 MG, QD (90 DAYS)
     Route: 048
  14. MONTELUKAST SODIUM [Suspect]
     Active Substance: MONTELUKAST SODIUM
     Dosage: 10 MG, QD (30 DAYS)
     Route: 065
  15. MONTELUKAST SODIUM [Suspect]
     Active Substance: MONTELUKAST SODIUM
     Dosage: 10 MG, QD (90 DAYS)
     Route: 048
  16. MONTELUKAST SODIUM [Suspect]
     Active Substance: MONTELUKAST SODIUM
     Dosage: 50 MG, QD
     Route: 048
  17. MONTELUKAST SODIUM [Suspect]
     Active Substance: MONTELUKAST SODIUM
     Dosage: 50 MG, QD
     Route: 065
  18. MONTELUKAST SODIUM [Suspect]
     Active Substance: MONTELUKAST SODIUM
     Dosage: 50 MG, QD
     Route: 065
  19. MONTELUKAST SODIUM [Suspect]
     Active Substance: MONTELUKAST SODIUM
     Dosage: 50 MG, QD
     Route: 048
  20. MONTELUKAST SODIUM [Suspect]
     Active Substance: MONTELUKAST SODIUM
     Dosage: 50 MG, QD
     Route: 065
  21. MONTELUKAST SODIUM [Suspect]
     Active Substance: MONTELUKAST SODIUM
     Dosage: 50 MG, QD
     Route: 048
  22. MONTELUKAST SODIUM [Suspect]
     Active Substance: MONTELUKAST SODIUM
     Dosage: 50 MG, QD
     Route: 065
  23. PREGABALIN [Suspect]
     Active Substance: PREGABALIN
     Indication: Product used for unknown indication
     Dosage: 100 MG, QD (50 MG, BID (30 DAYS))
     Route: 048
  24. PREGABALIN [Suspect]
     Active Substance: PREGABALIN
     Route: 048
  25. ENTRESTO [Suspect]
     Active Substance: SACUBITRIL\VALSARTAN
     Indication: Product used for unknown indication
     Dosage: 2 DOSAGE FORM, QD (1 DF, BID (*90 DAYS)
     Route: 048
  26. ENTRESTO [Suspect]
     Active Substance: SACUBITRIL\VALSARTAN
     Dosage: 2 DOSAGE FORM, QD (1 DF, BID (*90 DAYS)
     Route: 048
  27. ENTRESTO [Suspect]
     Active Substance: SACUBITRIL\VALSARTAN
     Dosage: 2 DOSAGE FORM, QD (1 DF, BID (*90 DAYS)
     Route: 048
  28. ENTRESTO [Suspect]
     Active Substance: SACUBITRIL\VALSARTAN
     Dosage: 2 DOSAGE FORM, QD (1 DF, BID (*90 DAYS)
     Route: 048
  29. ENTRESTO [Suspect]
     Active Substance: SACUBITRIL\VALSARTAN
     Dosage: 2 DOSAGE FORM, QD (1 DF, BID (*90 DAYS)
     Route: 048
  30. ENTRESTO [Suspect]
     Active Substance: SACUBITRIL\VALSARTAN
     Dosage: 2 DOSAGE FORM, QD (1 DF, BID (*30 DAYS)
     Route: 048
  31. ENTRESTO [Suspect]
     Active Substance: SACUBITRIL\VALSARTAN
     Dosage: 2 DOSAGE FORM, QD (1 DF, BID (*90 DAYS)
     Route: 048
  32. ENTRESTO [Suspect]
     Active Substance: SACUBITRIL\VALSARTAN
     Dosage: 2 DOSAGE FORM, QD (1 DF, BID (*90 DAYS)
     Route: 048
  33. ENTRESTO [Suspect]
     Active Substance: SACUBITRIL\VALSARTAN
     Dosage: 2 DOSAGE FORM, QD (1 DF, BID (*90 DAYS)
     Route: 048
  34. ENTRESTO [Suspect]
     Active Substance: SACUBITRIL\VALSARTAN
     Route: 048
  35. AMLODIPINE [Suspect]
     Active Substance: AMLODIPINE BESYLATE
     Indication: Product used for unknown indication
     Dosage: 2.5 MG, QD (30 DAYS)
     Route: 065
  36. AZITHROMYCIN [Suspect]
     Active Substance: AZITHROMYCIN
     Indication: Product used for unknown indication
     Route: 065
  37. GLYCOPYRROLATE [Suspect]
     Active Substance: GLYCOPYRROLATE
     Indication: Asthma
     Dosage: 1 DF, QD (30 DAYS)
     Route: 055
  38. GLYCOPYRROLATE [Suspect]
     Active Substance: GLYCOPYRROLATE
     Indication: Product used for unknown indication
     Dosage: 50 UG, QD (30 DAYS)
     Route: 055
  39. GLYCOPYRROLATE [Suspect]
     Active Substance: GLYCOPYRROLATE
     Dosage: 50 UG, QD (30 DAYS)
     Route: 055
  40. PERINDOPRIL [Suspect]
     Active Substance: PERINDOPRIL
     Indication: Product used for unknown indication
     Route: 065
  41. PERINDOPRIL [Suspect]
     Active Substance: PERINDOPRIL
     Route: 065
  42. PERINDOPRIL [Suspect]
     Active Substance: PERINDOPRIL
     Dosage: 2.5 MG, QD
     Route: 065
  43. MONTELUKAST [Suspect]
     Active Substance: MONTELUKAST
     Indication: Product used for unknown indication
     Dosage: 10 MG, QD ( SINGULAIR)
     Route: 065
  44. MONTELUKAST [Suspect]
     Active Substance: MONTELUKAST
     Route: 065
  45. MONTELUKAST [Suspect]
     Active Substance: MONTELUKAST
     Dosage: 2.5 MG, QD
     Route: 065
  46. BISOPROLOL [Suspect]
     Active Substance: BISOPROLOL
     Indication: Product used for unknown indication
     Dosage: 0.25 DOSAGE FORM, QD
     Route: 065
  47. BISOPROLOL [Suspect]
     Active Substance: BISOPROLOL
     Dosage: 2.5 MG, QD
     Route: 065
  48. DICLOFENAC POTASSIUM [Suspect]
     Active Substance: DICLOFENAC POTASSIUM
     Indication: Product used for unknown indication
     Route: 065
  49. PERINDOPRIL ERBUMINE [Suspect]
     Active Substance: PERINDOPRIL ERBUMINE
     Indication: Product used for unknown indication
     Dosage: 2.5 MG, QD
     Route: 065
  50. ALBUTEROL SULFATE [Suspect]
     Active Substance: ALBUTEROL SULFATE
     Indication: Product used for unknown indication
     Route: 055
  51. ALBUTEROL SULFATE [Suspect]
     Active Substance: ALBUTEROL SULFATE
     Dosage: 8 DOSAGE FORM, QD (2 DF, QID (*25 DAYS) (AEROSOL)
     Route: 065
  52. ALBUTEROL SULFATE [Suspect]
     Active Substance: ALBUTEROL SULFATE
     Route: 065
  53. ALBUTEROL SULFATE [Suspect]
     Active Substance: ALBUTEROL SULFATE
     Dosage: 2 DOSAGE FORM, Q6H
     Route: 065
  54. ALVESCO [Suspect]
     Active Substance: CICLESONIDE
     Indication: Product used for unknown indication
     Dosage: 4 DOSAGE FORM, QD (2 DF, BID (*90 DAYS)
     Route: 065
  55. ALVESCO [Suspect]
     Active Substance: CICLESONIDE
     Dosage: 4 DOSAGE FORM, QD  (2 DF, BID (*90 DAYS)
     Route: 065
  56. ALVESCO [Suspect]
     Active Substance: CICLESONIDE
     Dosage: 4 DOSAGE FORM, QD (2 DF, BID (*90 DAYS) (AEROSOL)
     Route: 065
  57. BISOPROLOL FUMARATE [Suspect]
     Active Substance: BISOPROLOL FUMARATE
     Indication: Product used for unknown indication
     Dosage: 2.5 MG, QD (TABLET)
     Route: 065
  58. BISOPROLOL FUMARATE [Suspect]
     Active Substance: BISOPROLOL FUMARATE
     Dosage: 0.25 MG, QD
     Route: 065
  59. DOXYCYCLINE HYDROCHLORIDE [Suspect]
     Active Substance: DOXYCYCLINE HYDROCHLORIDE
     Indication: Product used for unknown indication
     Dosage: 200 MG, QD (100 MG, BID (*10 DAYS)
     Route: 048
  60. DOXYCYCLINE HYDROCHLORIDE [Suspect]
     Active Substance: DOXYCYCLINE HYDROCHLORIDE
     Dosage: 200 MG, QD (100 MG, BID (*7 DAYS)
     Route: 065
  61. DOXYCYCLINE HYDROCHLORIDE [Suspect]
     Active Substance: DOXYCYCLINE HYDROCHLORIDE
     Dosage: 200 MG, QD (100 MG, BID (*10 DAYS)
     Route: 048
  62. DOXYCYCLINE HYDROCHLORIDE [Suspect]
     Active Substance: DOXYCYCLINE HYDROCHLORIDE
     Dosage: 200 MG, QD (100 MG, BID (*10 DAYS)
     Route: 065
  63. DOXYCYCLINE HYDROCHLORIDE [Suspect]
     Active Substance: DOXYCYCLINE HYDROCHLORIDE
     Route: 065
  64. DOXYCYCLINE HYDROCHLORIDE [Suspect]
     Active Substance: DOXYCYCLINE HYDROCHLORIDE
     Dosage: 200 MG, QD (100 MG, BID (*10 DAYS)
     Route: 048
  65. PREDNISONE [Suspect]
     Active Substance: PREDNISONE
     Indication: Product used for unknown indication
     Dosage: 50 MG, QD (7 DAYS)
     Route: 065
  66. PREDNISONE [Suspect]
     Active Substance: PREDNISONE
     Dosage: 50 MG, QD (3 DAYS)
     Route: 065
  67. PREDNISONE [Suspect]
     Active Substance: PREDNISONE
     Dosage: 25 MG, QD (3 DAYS)
     Route: 065
  68. PREDNISONE [Suspect]
     Active Substance: PREDNISONE
     Route: 065
  69. PREDNISONE [Suspect]
     Active Substance: PREDNISONE
     Dosage: 50 MG, QD (4 DAYS)
     Route: 065
  70. PREDNISONE [Suspect]
     Active Substance: PREDNISONE
     Route: 065
  71. PREDNISONE [Suspect]
     Active Substance: PREDNISONE
     Dosage: 50 MG, QD (5 DAYS)
     Route: 048
  72. PREDNISONE [Suspect]
     Active Substance: PREDNISONE
     Dosage: 50 MG, QD (5 DAYS)
     Route: 048
  73. PREDNISONE [Suspect]
     Active Substance: PREDNISONE
     Dosage: 50 MG, QD (5 DAYS)
     Route: 065
  74. PREDNISONE [Suspect]
     Active Substance: PREDNISONE
     Dosage: 40 MG, QD (7 DAYS)
     Route: 065
  75. PREDNISONE [Suspect]
     Active Substance: PREDNISONE
     Dosage: 25 MG, QD (3 DAYS)
     Route: 065
  76. PREDNISONE [Suspect]
     Active Substance: PREDNISONE
     Dosage: 50 MG, QD (5 DAYS)
     Route: 048
  77. PREDNISONE [Suspect]
     Active Substance: PREDNISONE
     Route: 065
  78. PREDNISONE [Suspect]
     Active Substance: PREDNISONE
     Dosage: 25 MG, QD (3 DAYS)
     Route: 065
  79. PREDNISONE [Suspect]
     Active Substance: PREDNISONE
     Dosage: 25 MG, QD (3 DAYS)
     Route: 065
  80. PREDNISONE [Suspect]
     Active Substance: PREDNISONE
     Route: 065
  81. PREDNISONE [Suspect]
     Active Substance: PREDNISONE
     Route: 065
  82. ACETAMINOPHEN\TRAMADOL HYDROCHLORIDE [Suspect]
     Active Substance: ACETAMINOPHEN\TRAMADOL HYDROCHLORIDE
     Indication: Product used for unknown indication
     Route: 048
  83. ATROVENT HFA [Suspect]
     Active Substance: IPRATROPIUM BROMIDE
     Indication: Product used for unknown indication
     Dosage: 80 UG, QD (20 UG, QID (*25 DAYS)
     Route: 055
  84. ATROVENT HFA [Suspect]
     Active Substance: IPRATROPIUM BROMIDE
     Route: 065
  85. ATROVENT HFA [Suspect]
     Active Substance: IPRATROPIUM BROMIDE
     Route: 065
  86. BREO ELLIPTA [Suspect]
     Active Substance: FLUTICASONE FUROATE\VILANTEROL TRIFENATATE
     Indication: Product used for unknown indication
     Dosage: 1 DF, QD (*90 DAYS)
     Route: 055
  87. BREO ELLIPTA [Suspect]
     Active Substance: FLUTICASONE FUROATE\VILANTEROL TRIFENATATE
     Dosage: 1 DF, QD (*90 DAYS)
     Route: 055
  88. BREO ELLIPTA [Suspect]
     Active Substance: FLUTICASONE FUROATE\VILANTEROL TRIFENATATE
     Dosage: 1 DF, QD (*60 DAYS)
     Route: 055
  89. BREO ELLIPTA [Suspect]
     Active Substance: FLUTICASONE FUROATE\VILANTEROL TRIFENATATE
     Dosage: 1 DF, QD (*90 DAYS)
     Route: 055
  90. BREO ELLIPTA [Suspect]
     Active Substance: FLUTICASONE FUROATE\VILANTEROL TRIFENATATE
     Dosage: 1 DOSAGE FORM, QD
     Route: 065
  91. BREO ELLIPTA [Suspect]
     Active Substance: FLUTICASONE FUROATE\VILANTEROL TRIFENATATE
     Dosage: 1 DOSAGE FORM, QD
     Route: 065
  92. BREO ELLIPTA [Suspect]
     Active Substance: FLUTICASONE FUROATE\VILANTEROL TRIFENATATE
     Dosage: 1 DOSAGE FORM, QD
     Route: 065
  93. BREO ELLIPTA [Suspect]
     Active Substance: FLUTICASONE FUROATE\VILANTEROL TRIFENATATE
     Dosage: 1 DOSAGE FORM, QD
     Route: 065
  94. VARENICLINE TARTRATE [Suspect]
     Active Substance: VARENICLINE TARTRATE
     Indication: Product used for unknown indication
     Route: 065
  95. PERINDOPRIL [Suspect]
     Active Substance: PERINDOPRIL
     Indication: Product used for unknown indication
     Dosage: 8 MG, QD (*90 DAYS)
     Route: 065
  96. INDAPAMIDE\PERINDOPRIL ERBUMINE [Suspect]
     Active Substance: INDAPAMIDE\PERINDOPRIL ERBUMINE
     Indication: Product used for unknown indication
     Dosage: 1 DF, QD (*90 DAYS)
     Route: 065
  97. INDAPAMIDE\PERINDOPRIL ERBUMINE [Suspect]
     Active Substance: INDAPAMIDE\PERINDOPRIL ERBUMINE
     Dosage: 1 DF, QD (*90 DAYS)
     Route: 065
  98. INDAPAMIDE\PERINDOPRIL ERBUMINE [Suspect]
     Active Substance: INDAPAMIDE\PERINDOPRIL ERBUMINE
     Dosage: 1 DF, QD (*90 DAYS)
     Route: 065
  99. INDAPAMIDE\PERINDOPRIL ERBUMINE [Suspect]
     Active Substance: INDAPAMIDE\PERINDOPRIL ERBUMINE
     Dosage: 1 DF, QD (*90 DAYS)
     Route: 065
  100. INDAPAMIDE\PERINDOPRIL ERBUMINE [Suspect]
     Active Substance: INDAPAMIDE\PERINDOPRIL ERBUMINE
     Dosage: 1 DF, QD (*90 DAYS)
     Route: 065
  101. INDAPAMIDE\PERINDOPRIL ERBUMINE [Suspect]
     Active Substance: INDAPAMIDE\PERINDOPRIL ERBUMINE
     Dosage: 1 DF, QD (*90 DAYS)
     Route: 065
  102. INDAPAMIDE\PERINDOPRIL ERBUMINE [Suspect]
     Active Substance: INDAPAMIDE\PERINDOPRIL ERBUMINE
     Dosage: 2.5 MG, QD
     Route: 065
  103. CYCLOBENZAPRINE [Suspect]
     Active Substance: CYCLOBENZAPRINE
     Indication: Product used for unknown indication
     Dosage: 10 MG, TID (5 DAYS)
     Route: 048
  104. CYCLOBENZAPRINE [Suspect]
     Active Substance: CYCLOBENZAPRINE
     Route: 065
  105. CYCLOBENZAPRINE [Suspect]
     Active Substance: CYCLOBENZAPRINE
     Route: 065
  106. CYCLOBENZAPRINE [Suspect]
     Active Substance: CYCLOBENZAPRINE
     Dosage: 2.5 MG, QD
     Route: 065
  107. FLUTICASONE PROPIONATE\SALMETEROL XINAFOATE [Suspect]
     Active Substance: FLUTICASONE PROPIONATE\SALMETEROL XINAFOATE
     Indication: Product used for unknown indication
     Dosage: 2 DF, BID (*30 DAYS)
     Route: 055
  108. INSPRA [Suspect]
     Active Substance: EPLERENONE
     Indication: Product used for unknown indication
     Dosage: 50 MG, QD (*90 DAYS)
     Route: 065
  109. INSPRA [Suspect]
     Active Substance: EPLERENONE
     Dosage: 50 MG, QD (*60 DAYS)
     Route: 065
  110. INSPRA [Suspect]
     Active Substance: EPLERENONE
     Dosage: 50 MG, QD (*1 DAY)
     Route: 048
  111. INSPRA [Suspect]
     Active Substance: EPLERENONE
     Dosage: 50 MG, QD (*90 DAYS)
     Route: 065
  112. INSPRA [Suspect]
     Active Substance: EPLERENONE
     Dosage: 50 MG, QD (*90 DAYS)
     Route: 048
  113. INSPRA [Suspect]
     Active Substance: EPLERENONE
     Dosage: 50 MG, QD (*90 DAYS)
     Route: 065
  114. INSPRA [Suspect]
     Active Substance: EPLERENONE
     Dosage: 50 MG, QD (*90 DAYS)
     Route: 065
  115. INSPRA [Suspect]
     Active Substance: EPLERENONE
     Dosage: 50 MG, QD (*89 DAYS)
     Route: 048
  116. IVABRADINE HYDROCHLORIDE [Suspect]
     Active Substance: IVABRADINE HYDROCHLORIDE
     Indication: Product used for unknown indication
     Dosage: 7.5 MG, BID (90 DAYS)
     Route: 048
  117. IVABRADINE HYDROCHLORIDE [Suspect]
     Active Substance: IVABRADINE HYDROCHLORIDE
     Dosage: 7.5 MG, BID
     Route: 048
  118. IVABRADINE HYDROCHLORIDE [Suspect]
     Active Substance: IVABRADINE HYDROCHLORIDE
     Route: 048
  119. IVABRADINE HYDROCHLORIDE [Suspect]
     Active Substance: IVABRADINE HYDROCHLORIDE
     Dosage: 2.5 MG, QD
     Route: 048
  120. KETOROLAC [Suspect]
     Active Substance: KETOROLAC TROMETHAMINE
     Indication: Product used for unknown indication
     Dosage: 10 MG, TID (5 DAYS)
     Route: 048
  121. KETOROLAC [Suspect]
     Active Substance: KETOROLAC TROMETHAMINE
     Route: 048
  122. KETOROLAC [Suspect]
     Active Substance: KETOROLAC TROMETHAMINE
     Route: 048
  123. MEPOLIZUMAB [Suspect]
     Active Substance: MEPOLIZUMAB
     Indication: Asthma
     Route: 042
  124. MEPOLIZUMAB [Suspect]
     Active Substance: MEPOLIZUMAB
     Dosage: 100 MG, QMO
     Route: 042
  125. CARVEDILOL [Suspect]
     Active Substance: CARVEDILOL
     Indication: Product used for unknown indication
     Dosage: 6.25 MG, BID (*90 DAYS)
     Route: 065
  126. ALBUTEROL SULFATE [Suspect]
     Active Substance: ALBUTEROL SULFATE
     Indication: Product used for unknown indication
     Route: 055
  127. ALBUTEROL SULFATE [Suspect]
     Active Substance: ALBUTEROL SULFATE
     Route: 055
  128. ALBUTEROL SULFATE [Suspect]
     Active Substance: ALBUTEROL SULFATE
     Route: 055
  129. ALBUTEROL SULFATE [Suspect]
     Active Substance: ALBUTEROL SULFATE
     Route: 055
  130. ALBUTEROL SULFATE [Suspect]
     Active Substance: ALBUTEROL SULFATE
     Route: 055
  131. SINGULAIR [Suspect]
     Active Substance: MONTELUKAST SODIUM
     Indication: Product used for unknown indication
     Dosage: 10 MG, QD
     Route: 065
  132. SINGULAIR [Suspect]
     Active Substance: MONTELUKAST SODIUM
     Dosage: 2.5 MG, QD
     Route: 065
  133. MONTELUKAST SODIUM [Suspect]
     Active Substance: MONTELUKAST SODIUM
     Indication: Product used for unknown indication
     Dosage: 10 MG, QD (30 DAYS MONTELUKAST/TEVA  )
     Route: 065
  134. SPIRONOLACTONE [Suspect]
     Active Substance: SPIRONOLACTONE
     Indication: Product used for unknown indication
     Dosage: 12.5 MG, QD (*90 DAYS)
     Route: 065
  135. UMECLIDINIUM BROMIDE [Suspect]
     Active Substance: UMECLIDINIUM BROMIDE
     Indication: Product used for unknown indication
     Dosage: 1 DF, QD
     Route: 065
  136. UMECLIDINIUM BROMIDE [Suspect]
     Active Substance: UMECLIDINIUM BROMIDE
     Route: 065
  137. UMECLIDINIUM BROMIDE [Suspect]
     Active Substance: UMECLIDINIUM BROMIDE
     Dosage: 2.5 MG, QD
     Route: 065
  138. UMECLIDINIUM BROMIDE [Suspect]
     Active Substance: UMECLIDINIUM BROMIDE
     Dosage: 2.5 MG, QD
     Route: 065
  139. VENTOLIN HFA [Suspect]
     Active Substance: ALBUTEROL SULFATE
     Indication: Product used for unknown indication
     Route: 065
  140. VENTOLIN HFA [Suspect]
     Active Substance: ALBUTEROL SULFATE
     Route: 065
  141. ZENHALE [Suspect]
     Active Substance: FORMOTEROL FUMARATE\MOMETASONE FUROATE
     Indication: Product used for unknown indication
     Dosage: 2 DF, BID (90 DAYS) (AEROSOL, METERED DOSE)
     Route: 065
  142. ZENHALE [Suspect]
     Active Substance: FORMOTEROL FUMARATE\MOMETASONE FUROATE
     Route: 065
  143. ACETAMINOPHEN [Suspect]
     Active Substance: ACETAMINOPHEN
     Indication: Product used for unknown indication
     Route: 065
  144. ACETAMINOPHEN [Suspect]
     Active Substance: ACETAMINOPHEN
     Route: 065
  145. ADVAIR HFA [Suspect]
     Active Substance: FLUTICASONE PROPIONATE\SALMETEROL XINAFOATE
     Indication: Product used for unknown indication
     Dosage: 2 DOSAGE FORM, Q12H
     Route: 055
  146. ADVAIR HFA [Suspect]
     Active Substance: FLUTICASONE PROPIONATE\SALMETEROL XINAFOATE
     Route: 065
  147. AMLODIPINE BESYLATE [Suspect]
     Active Substance: AMLODIPINE BESYLATE
     Indication: Product used for unknown indication
     Dosage: 2.5 MG, QD (TABLET)
     Route: 065
  148. AMLODIPINE BESYLATE [Suspect]
     Active Substance: AMLODIPINE BESYLATE
     Dosage: 2.5 MG, QMO
     Route: 065
  149. AMLODIPINE BESYLATE [Suspect]
     Active Substance: AMLODIPINE BESYLATE
     Dosage: 2.5 MG, QD (TABLET)
     Route: 065
  150. FUROSEMIDE [Suspect]
     Active Substance: FUROSEMIDE
     Indication: Product used for unknown indication
     Dosage: 20 MG, QD (TABLET)
     Route: 065
  151. FUROSEMIDE [Suspect]
     Active Substance: FUROSEMIDE
     Dosage: 20 MG, QD
     Route: 065
  152. FUROSEMIDE [Suspect]
     Active Substance: FUROSEMIDE
     Dosage: 20 MG, QD
     Route: 065
  153. FUROSEMIDE [Suspect]
     Active Substance: FUROSEMIDE
     Route: 065
  154. DOXYCYCLINE [Suspect]
     Active Substance: DOXYCYCLINE
     Indication: Product used for unknown indication
     Dosage: 100 MG, BID (CAPSULES)
     Route: 065
  155. DOXYCYCLINE [Suspect]
     Active Substance: DOXYCYCLINE
     Dosage: 100 MG, BID
     Route: 048
  156. DOXYCYCLINE [Suspect]
     Active Substance: DOXYCYCLINE
     Dosage: 100 MG, BID
     Route: 065
  157. DOXYCYCLINE [Suspect]
     Active Substance: DOXYCYCLINE
     Dosage: 100 MG, BID
     Route: 048
  158. DOXYCYCLINE [Suspect]
     Active Substance: DOXYCYCLINE
     Dosage: 100 MG, BID
     Route: 048
  159. DOXYCYCLINE [Suspect]
     Active Substance: DOXYCYCLINE
     Dosage: 100 MG, Q12H
     Route: 065
  160. DOXYCYCLINE [Suspect]
     Active Substance: DOXYCYCLINE
     Dosage: 100 MG, Q12H
     Route: 048
  161. DOXYCYCLINE [Suspect]
     Active Substance: DOXYCYCLINE
     Dosage: 100 MG, Q12H
     Route: 048
  162. DOXYCYCLINE [Suspect]
     Active Substance: DOXYCYCLINE
     Dosage: 100 MG, Q12H
     Route: 048
  163. DOXYCYCLINE [Suspect]
     Active Substance: DOXYCYCLINE
     Dosage: 100 MG, Q12H
     Route: 065
  164. DOXYCYCLINE HYCLATE [Suspect]
     Active Substance: DOXYCYCLINE HYCLATE
     Indication: Product used for unknown indication
     Route: 048
  165. DOXYCYCLINE HYCLATE [Suspect]
     Active Substance: DOXYCYCLINE HYCLATE
     Route: 065
  166. DOXYCYCLINE HYCLATE [Suspect]
     Active Substance: DOXYCYCLINE HYCLATE
     Route: 048
  167. DOXYCYCLINE HYCLATE [Suspect]
     Active Substance: DOXYCYCLINE HYCLATE
     Route: 065
  168. DOXYCYCLINE HYCLATE [Suspect]
     Active Substance: DOXYCYCLINE HYCLATE
     Route: 065
  169. DOXYCYCLINE HYCLATE [Suspect]
     Active Substance: DOXYCYCLINE HYCLATE
     Route: 048
  170. DOXYCYCLINE HYCLATE [Suspect]
     Active Substance: DOXYCYCLINE HYCLATE
     Dosage: 2.5 MG, QD
     Route: 065
  171. FORMOTEROL [Suspect]
     Active Substance: FORMOTEROL
     Indication: Product used for unknown indication
     Route: 065
  172. FORMOTEROL [Suspect]
     Active Substance: FORMOTEROL
     Dosage: 2.5 MG, QD (INHALATION POWDER)
     Route: 065
  173. KETOROLAC TROMETHAMINE [Suspect]
     Active Substance: KETOROLAC TROMETHAMINE
     Indication: Product used for unknown indication
     Dosage: 10 MG, Q8H
     Route: 048
  174. KETOROLAC TROMETHAMINE [Suspect]
     Active Substance: KETOROLAC TROMETHAMINE
     Route: 048
  175. KETOROLAC TROMETHAMINE [Suspect]
     Active Substance: KETOROLAC TROMETHAMINE
     Route: 048
  176. INDAPAMIDE\PERINDOPRIL ERBUMINE [Suspect]
     Active Substance: INDAPAMIDE\PERINDOPRIL ERBUMINE
     Indication: Product used for unknown indication
     Route: 065
  177. AZITHROMYCIN ANHYDROUS [Suspect]
     Active Substance: AZITHROMYCIN ANHYDROUS
     Indication: Product used for unknown indication
     Route: 065
  178. CARVEDILOL [Suspect]
     Active Substance: CARVEDILOL
     Indication: Product used for unknown indication
     Dosage: 650 MG, Q12H (TABLET)
     Route: 065
  179. CARVEDILOL [Suspect]
     Active Substance: CARVEDILOL
     Dosage: 2.5 MG, QD
     Route: 065
  180. SPIRONOLACTONE [Suspect]
     Active Substance: SPIRONOLACTONE
     Indication: Product used for unknown indication
     Route: 065
  181. SPIRONOLACTONE [Suspect]
     Active Substance: SPIRONOLACTONE
     Route: 065
  182. TIOTROPIUM BROMIDE MONOHYDRATE [Suspect]
     Active Substance: TIOTROPIUM BROMIDE MONOHYDRATE
     Indication: Product used for unknown indication
     Dosage: 2 DOSAGE FORM, QD
     Route: 065
  183. TIOTROPIUM BROMIDE MONOHYDRATE [Suspect]
     Active Substance: TIOTROPIUM BROMIDE MONOHYDRATE
     Route: 065
  184. TIOTROPIUM BROMIDE MONOHYDRATE [Suspect]
     Active Substance: TIOTROPIUM BROMIDE MONOHYDRATE
     Dosage: 2.5 MG, QD
     Route: 065
  185. TIOTROPIUM BROMIDE MONOHYDRATE [Suspect]
     Active Substance: TIOTROPIUM BROMIDE MONOHYDRATE
     Dosage: 2.5 MG, QD
     Route: 065
  186. VARENICLINE TARTRATE [Suspect]
     Active Substance: VARENICLINE TARTRATE
     Indication: Product used for unknown indication
     Route: 065
  187. VARENICLINE TARTRATE [Suspect]
     Active Substance: VARENICLINE TARTRATE
     Dosage: 2.5 MG, QD
     Route: 065
  188. PERINDOPRIL ARGININE [Suspect]
     Active Substance: PERINDOPRIL ARGININE
     Indication: Product used for unknown indication
     Dosage: 8 MG, QD (TABLET (ORALLY DISINTEGRATING))
     Route: 065
  189. PERINDOPRIL ARGININE [Suspect]
     Active Substance: PERINDOPRIL ARGININE
     Dosage: 2.5 MG, QD (TABLET (ORALLY DISINTEGRATING))
     Route: 065
  190. SPIRIVA [Suspect]
     Active Substance: TIOTROPIUM BROMIDE MONOHYDRATE
     Indication: Product used for unknown indication
     Dosage: 2 DOSAGE FORM, QD
     Route: 065
  191. TRAMADOL [Suspect]
     Active Substance: TRAMADOL
     Indication: Product used for unknown indication
     Route: 048
  192. ALBUTEROL [Suspect]
     Active Substance: ALBUTEROL
     Indication: Product used for unknown indication
     Dosage: 2.5 MG, QD
     Route: 065
  193. ALBUTEROL [Suspect]
     Active Substance: ALBUTEROL
     Dosage: 2.5 MG, QD
     Route: 065
  194. ALBUTEROL [Suspect]
     Active Substance: ALBUTEROL
     Dosage: 2.5 MG, QD
     Route: 065
  195. ALBUTEROL [Suspect]
     Active Substance: ALBUTEROL
     Dosage: 2.5 MG, QD
     Route: 065
  196. ALBUTEROL [Suspect]
     Active Substance: ALBUTEROL
     Dosage: 2.5 MG, QD
     Route: 065
  197. FORMOTEROL FUMARATE [Suspect]
     Active Substance: FORMOTEROL FUMARATE
     Indication: Product used for unknown indication
     Route: 065
  198. FLUTICASONE PROPIONATE [Suspect]
     Active Substance: FLUTICASONE PROPIONATE
     Indication: Product used for unknown indication
     Route: 065
  199. AZITHROMYCIN MONOHYDRATE [Suspect]
     Active Substance: AZITHROMYCIN MONOHYDRATE
     Indication: Product used for unknown indication
     Dosage: 2.5 MG, QD
     Route: 065
  200. CYCLOBENZAPRINE [Suspect]
     Active Substance: CYCLOBENZAPRINE
     Indication: Product used for unknown indication
     Dosage: 2.5 MG, QD
     Route: 065
  201. ALTHIAZIDE [Suspect]
     Active Substance: ALTHIAZIDE
     Indication: Product used for unknown indication
     Dosage: 2.5 MG, QD
     Route: 065
  202. ACEBUTOLOL HYDROCHLORIDE [Suspect]
     Active Substance: ACEBUTOLOL HYDROCHLORIDE
     Indication: Product used for unknown indication
     Dosage: 2.5 MG, QD
     Route: 065
  203. VILANTEROL TRIFENATATE [Suspect]
     Active Substance: VILANTEROL TRIFENATATE
     Indication: Product used for unknown indication
     Route: 065
  204. INFLUENZA VIRUS VACCINE [Concomitant]
     Active Substance: INFLUENZA VIRUS VACCINE
     Indication: Product used for unknown indication
     Route: 065
  205. INFLUENZA VIRUS VACCINE [Concomitant]
     Active Substance: INFLUENZA VIRUS VACCINE
     Dosage: 2.5 MG, QD
     Route: 065
  206. BISOPROLOL FUMARATE [Suspect]
     Active Substance: BISOPROLOL FUMARATE
     Indication: Product used for unknown indication
     Route: 065

REACTIONS (14)
  - Asthma-chronic obstructive pulmonary disease overlap syndrome [Recovering/Resolving]
  - Breath sounds abnormal [Recovering/Resolving]
  - Bronchial hyperreactivity [Recovering/Resolving]
  - Bronchitis [Recovering/Resolving]
  - Cardiac disorder [Recovering/Resolving]
  - Cardiomyopathy [Recovering/Resolving]
  - Dyspnoea [Recovering/Resolving]
  - Eosinophilia [Recovering/Resolving]
  - Ischaemic cardiomyopathy [Recovering/Resolving]
  - Obstructive airways disorder [Recovering/Resolving]
  - Pulmonary function test abnormal [Recovering/Resolving]
  - Asthma [Recovering/Resolving]
  - Drug intolerance [Recovering/Resolving]
  - Drug ineffective [Recovering/Resolving]
